FAERS Safety Report 11300846 (Version 1)
Quarter: 2015Q3

REPORT INFORMATION
  Report Type: Spontaneous
  Country: US (occurrence: US)
  Receive Date: 20150722
  Receipt Date: 20150722
  Transmission Date: 20151125
  Serious: No
  Sender: FDA-Public Use
  Company Number: US-ELI_LILLY_AND_COMPANY-US201209004900

PATIENT
  Age: 69 Year
  Sex: Female

DRUGS (12)
  1. PRILOSEC [Concomitant]
     Active Substance: OMEPRAZOLE MAGNESIUM
  2. ASA [Concomitant]
     Active Substance: ASPIRIN
  3. BACTRAM [Concomitant]
  4. SIMVASTATIN. [Concomitant]
     Active Substance: SIMVASTATIN
  5. ZANTAC [Concomitant]
     Active Substance: RANITIDINE HYDROCHLORIDE
  6. PAXIL [Concomitant]
     Active Substance: PAROXETINE HYDROCHLORIDE
  7. EFFIENT [Suspect]
     Active Substance: PRASUGREL HYDROCHLORIDE
     Dosage: 60 MG, LOADING DOSE
     Route: 048
     Dates: start: 20120908
  8. HYDROCODONE [Concomitant]
     Active Substance: HYDROCODONE
  9. FENOFIBRATE. [Concomitant]
     Active Substance: FENOFIBRATE
  10. TAMOXIFEN [Concomitant]
     Active Substance: TAMOXIFEN
  11. FISH OIL [Concomitant]
     Active Substance: FISH OIL
  12. EFFIENT [Suspect]
     Active Substance: PRASUGREL HYDROCHLORIDE
     Dosage: UNK, UNKNOWN
     Route: 048
     Dates: end: 20120910

REACTIONS (1)
  - Rash pruritic [Recovered/Resolved]

NARRATIVE: CASE EVENT DATE: 201209
